FAERS Safety Report 8760792 (Version 3)
Quarter: 2013Q4

REPORT INFORMATION
  Report Type: Spontaneous
  Country: US (occurrence: US)
  Receive Date: 20120830
  Receipt Date: 20131023
  Transmission Date: 20140711
  Serious: Yes (Hospitalization)
  Sender: FDA-Public Use
  Company Number: US-BAYER-2012-087899

PATIENT
  Age: 29 Year
  Sex: Female
  Weight: 79.37 kg

DRUGS (6)
  1. YAZ [Suspect]
     Indication: CONTRACEPTION
     Dosage: UNK
     Dates: start: 20061211, end: 200802
  2. YAZ [Suspect]
     Indication: PREMENSTRUAL SYNDROME
  3. ALBUTEROL [Concomitant]
     Indication: ASTHMA PROPHYLAXIS
     Dosage: UNK
     Dates: start: 1989
  4. ZOLOFT [Concomitant]
     Indication: DEPRESSION
     Dosage: 50 MG, UNK
     Dates: start: 1989
  5. ANTIMIGRAINE PREPARATIONS [Concomitant]
     Dosage: UNK
     Dates: start: 1999
  6. LEVOTHYROXINE [Concomitant]
     Indication: THYROID DISORDER
     Dosage: UNK
     Dates: start: 2006

REACTIONS (9)
  - Cholelithiasis [None]
  - Cholecystitis chronic [None]
  - Pain [None]
  - Injury [None]
  - Abdominal pain upper [None]
  - Back pain [None]
  - Vomiting [None]
  - Stress [None]
  - Gastrooesophageal reflux disease [None]
